FAERS Safety Report 4756911-0 (Version None)
Quarter: 2005Q3

REPORT INFORMATION
  Report Type: 
  Country: None (occurrence: None)
  Receive Date: 20050830
  Receipt Date: 20050825
  Transmission Date: 20060218
  Serious: Yes (Other)
  Sender: FDA-Public Use
  Company Number: 2005UW12649

PATIENT
  Age: 78 Year
  Sex: Female

DRUGS (3)
  1. ARIMIDEX [Suspect]
     Indication: BREAST CANCER
     Route: 048
     Dates: start: 20050501
  2. ZOCOR [Concomitant]
  3. SYNTHROID [Concomitant]

REACTIONS (2)
  - ABASIA [None]
  - DISABILITY [None]
